FAERS Safety Report 25957774 (Version 2)
Quarter: 2025Q4

REPORT INFORMATION
  Report Type: Spontaneous
  Country: US (occurrence: US)
  Receive Date: 20251024
  Receipt Date: 20251028
  Transmission Date: 20260118
  Serious: Yes (Death, Other)
  Sender: BRISTOL-MYERS SQUIBB COMPANY
  Company Number: US-BRISTOL-MYERS SQUIBB COMPANY-2025-145232

PATIENT
  Age: 79 Year
  Sex: Male

DRUGS (1)
  1. REVLIMID [Suspect]
     Active Substance: LENALIDOMIDE
     Indication: Diffuse large B-cell lymphoma
     Dosage: TAKE 1 CAPSULE BY MOUTH IN THE MORNING FOR 21 DAYS, FOLLOWED BY 7 DAYS OFF EACH 28 DAY CYCLE.
     Route: 048
     Dates: start: 20251013

REACTIONS (3)
  - Non-Hodgkin^s lymphoma [Fatal]
  - Infection [Fatal]
  - Off label use [Unknown]
